FAERS Safety Report 9535355 (Version 1)
Quarter: 2013Q3

REPORT INFORMATION
  Report Type: Spontaneous
  Country: US (occurrence: US)
  Receive Date: 20130918
  Receipt Date: 20130918
  Transmission Date: 20140515
  Serious: No
  Sender: FDA-Public Use
  Company Number: US-PURDUE-USA-2012-0092133

PATIENT
  Age: 71 Year
  Sex: Male

DRUGS (6)
  1. DILAUDID INJECTION [Suspect]
     Indication: PAIN
     Route: 037
  2. FENTANYL [Concomitant]
     Indication: BREAKTHROUGH PAIN
     Dosage: 400 MCG, PRN
     Route: 060
  3. XANAX [Concomitant]
     Indication: PRODUCT USED FOR UNKNOWN INDICATION
     Dosage: UNK UNK, HS
  4. OLANZAPINE [Concomitant]
     Indication: PRODUCT USED FOR UNKNOWN INDICATION
     Dosage: UNK UNK, HS
  5. BUPIVACAINE [Concomitant]
     Indication: PAIN
     Route: 037
  6. CLONIDINE [Concomitant]
     Indication: PAIN
     Route: 037

REACTIONS (2)
  - Aphagia [Unknown]
  - Dysgeusia [Not Recovered/Not Resolved]
